FAERS Safety Report 25381029 (Version 1)
Quarter: 2025Q2

REPORT INFORMATION
  Report Type: Report from Study
  Country: US (occurrence: US)
  Receive Date: 20250530
  Receipt Date: 20250530
  Transmission Date: 20250717
  Serious: No
  Sender: MALLINCKRODT
  Company Number: US-MALLINCKRODT-MNK202503193

PATIENT
  Age: 44 Year
  Sex: Female
  Weight: 250 kg

DRUGS (1)
  1. CORTICOTROPIN [Suspect]
     Active Substance: CORTICOTROPIN
     Indication: Rheumatoid arthritis
     Route: 058
     Dates: start: 20250502

REACTIONS (2)
  - Injection site pain [Unknown]
  - Injection site irritation [Unknown]

NARRATIVE: CASE EVENT DATE: 20250501
